FAERS Safety Report 21554054 (Version 1)
Quarter: 2022Q4

REPORT INFORMATION
  Report Type: Report from Study
  Country: US (occurrence: US)
  Receive Date: 20221104
  Receipt Date: 20221104
  Transmission Date: 20230113
  Serious: No
  Sender: FDA-Public Use
  Company Number: US-ABBVIE-4183647

PATIENT

DRUGS (1)
  1. IMBRUVICA [Suspect]
     Active Substance: IBRUTINIB
     Indication: Product used for unknown indication
     Route: 048
     Dates: start: 2018

REACTIONS (4)
  - Drug ineffective [Recovered/Resolved]
  - Weight decreased [Recovering/Resolving]
  - Lymphadenopathy [Recovered/Resolved]
  - Night sweats [Recovered/Resolved]
